FAERS Safety Report 16126867 (Version 1)
Quarter: 2019Q1

REPORT INFORMATION
  Report Type: Spontaneous
  Country: US (occurrence: US)
  Receive Date: 20190222
  Receipt Date: 20190222
  Transmission Date: 20190418
  Serious: Yes (Disabling)
  Sender: FDA-Public Use
  Company Number: None

PATIENT
  Age: 47 Year
  Sex: Female
  Weight: 48.08 kg

DRUGS (2)
  1. ACYCLOVIR. [Suspect]
     Active Substance: ACYCLOVIR
     Indication: FACIAL PARALYSIS
     Route: 048
     Dates: start: 20190210, end: 20190214
  2. ZOVIRAX [Concomitant]
     Active Substance: ACYCLOVIR

REACTIONS (6)
  - Suspected product tampering [None]
  - Anger [None]
  - Seizure [None]
  - Swelling [None]
  - Victim of crime [None]
  - Headache [None]

NARRATIVE: CASE EVENT DATE: 20190214
